FAERS Safety Report 9208955 (Version 2)
Quarter: 2013Q2

REPORT INFORMATION
  Report Type: Spontaneous
  Country: GB (occurrence: GB)
  Receive Date: 20130404
  Receipt Date: 20130604
  Transmission Date: 20140414
  Serious: Yes (Other)
  Sender: FDA-Public Use
  Company Number: PHFR2013GB001421

PATIENT
  Age: 41 Year
  Sex: Male
  Weight: 60.5 kg

DRUGS (6)
  1. CLOZARIL [Suspect]
     Indication: SCHIZOPHRENIA
     Dosage: 550 MG, DAILY
     Route: 048
     Dates: start: 20120516
  2. CLOZARIL [Suspect]
     Dosage: UNK UKN, BID
     Route: 048
  3. CLOZARIL [Suspect]
     Dosage: 475 MG, DAILY
     Route: 048
  4. CLOZARIL [Suspect]
     Dosage: 500MG (150MG + 150MG + 200MG), QD
     Route: 048
  5. CLOZARIL [Suspect]
     Dosage: 500 MG, DAILY (150 MG + 150 MG + 200 MG)
     Route: 048
     Dates: start: 20130307
  6. LANSOPRAZOLE [Concomitant]
     Indication: DYSPEPSIA
     Dosage: 15 MG, UNK

REACTIONS (4)
  - Troponin T increased [Unknown]
  - Sinus tachycardia [Recovered/Resolved]
  - Palpitations [Unknown]
  - Somnolence [Unknown]
